FAERS Safety Report 9230419 (Version 1)
Quarter: 2013Q1

REPORT INFORMATION
  Report Type: Spontaneous
  Country: US (occurrence: None)
  Receive Date: 20121031
  Receipt Date: 20121031
  Transmission Date: 20140127
  Serious: No
  Sender: FDA-Public Use
  Company Number: PHEH2012US016836

PATIENT
  Age: 33 Year
  Sex: Male
  Weight: 139.7 kg

DRUGS (4)
  1. GILENYA (FTY) CAPSULE, 0.5 MG [Suspect]
     Indication: MULTIPLE SCLEROSIS RELAPSE
     Route: 048
     Dates: start: 20120816, end: 20120822
  2. FLEXERIL (CYCLOBENZAPRINE HYDROCHLORIDE) [Concomitant]
  3. ADDERALL (AMFETAMINE ASPARTATE, AMFETAMINE SULFATE, DEXAMFETAMINE SACCHARATE, DEXAMFETAMINE SULFATE) [Concomitant]
  4. BACLOFEN (BACLOFEN) [Concomitant]

REACTIONS (8)
  - Fall [None]
  - Back injury [None]
  - Muscular weakness [None]
  - Hypoaesthesia [None]
  - Heart rate decreased [None]
  - Influenza like illness [None]
  - Somnolence [None]
  - Fatigue [None]
